FAERS Safety Report 9358161 (Version 19)
Quarter: 2014Q4

REPORT INFORMATION
  Report Type: Report from Study
  Country: CA (occurrence: CA)
  Receive Date: 20130620
  Receipt Date: 20141017
  Transmission Date: 20150529
  Serious: Yes (Death, Other)
  Sender: FDA-Public Use
  Company Number: PHHY2013CA061963

PATIENT
  Age: 86 Year
  Sex: Female

DRUGS (6)
  1. DIURETICS [Concomitant]
     Active Substance: UNSPECIFIED INGREDIENT
     Indication: PRODUCT USED FOR UNKNOWN INDICATION
     Dosage: UNK UKN, UNK
     Route: 065
  2. SANDOSTATIN [Suspect]
     Active Substance: OCTREOTIDE ACETATE
     Indication: METASTATIC CARCINOID TUMOUR
     Dosage: 100 UG, TID
     Route: 058
     Dates: start: 2006
  3. BENADRYL ^ACHE^ [Concomitant]
     Active Substance: DIPHENHYDRAMINE HYDROCHLORIDE
     Indication: PRODUCT USED FOR UNKNOWN INDICATION
     Dosage: UNK UKN, UNK
     Route: 065
  4. SANDOSTATIN LAR DEPOT [Suspect]
     Active Substance: OCTREOTIDE ACETATE
     Indication: NEUROENDOCRINE TUMOUR
     Dosage: 30 MG, EVERY 2 WEEKS
     Route: 030
     Dates: start: 20060120, end: 20070206
  5. SANDOSTATIN LAR DEPOT [Suspect]
     Active Substance: OCTREOTIDE ACETATE
     Dosage: 30 MG, EVERY 2 WEEKS
     Route: 030
     Dates: end: 20141002
  6. SANDOSTATIN LAR DEPOT [Suspect]
     Active Substance: OCTREOTIDE ACETATE
     Indication: METASTATIC CARCINOID TUMOUR
     Dosage: 30 MG, EVERY 3 WEEKS
     Route: 030
     Dates: start: 20110222

REACTIONS (16)
  - Carcinoid crisis [Unknown]
  - Blood pressure increased [Unknown]
  - Nausea [Unknown]
  - Hyperhidrosis [Unknown]
  - Haematuria [Unknown]
  - Death [Fatal]
  - Ascites [Unknown]
  - Productive cough [Unknown]
  - Urinary bladder polyp [Unknown]
  - Weight decreased [Unknown]
  - Upper respiratory tract infection [Unknown]
  - Diarrhoea [Unknown]
  - Nephrolithiasis [Unknown]
  - Urinary tract infection [Unknown]
  - Bladder disorder [Unknown]
  - Abdominal pain [Recovering/Resolving]

NARRATIVE: CASE EVENT DATE: 20130923
